FAERS Safety Report 23301557 (Version 1)
Quarter: 2023Q4

REPORT INFORMATION
  Report Type: Report from Study
  Country: US (occurrence: US)
  Receive Date: 20231215
  Receipt Date: 20231215
  Transmission Date: 20240110
  Serious: Yes (Hospitalization, Other)
  Sender: FDA-Public Use
  Company Number: US-ASTELLAS-2023US037328

PATIENT
  Sex: Male

DRUGS (1)
  1. ENZALUTAMIDE [Suspect]
     Active Substance: ENZALUTAMIDE
     Indication: Product used for unknown indication
     Dosage: 160 MG (40 MGX4 TABLETS), UNKNOWN FREQ.
     Route: 065

REACTIONS (3)
  - Hallucination [Recovering/Resolving]
  - Memory impairment [Recovering/Resolving]
  - Laboratory test abnormal [Recovering/Resolving]
